FAERS Safety Report 20430738 (Version 2)
Quarter: 2022Q1

REPORT INFORMATION
  Report Type: Report from Study
  Country: FR (occurrence: FR)
  Receive Date: 20220204
  Receipt Date: 20220215
  Transmission Date: 20220423
  Serious: Yes (Hospitalization)
  Sender: FDA-Public Use
  Company Number: FR-SERVIER-S21003622

PATIENT

DRUGS (10)
  1. PEGASPARGASE [Suspect]
     Active Substance: PEGASPARGASE
     Indication: Acute lymphocytic leukaemia
     Dosage: 3750 IU, QD;  ON D4, D43
     Route: 042
     Dates: start: 20201231
  2. TN UNSPECIFIED [Concomitant]
     Indication: Acute lymphocytic leukaemia
     Dosage: 2 MG, D1, D8, D15, D43, D50
     Route: 042
     Dates: start: 20201228, end: 20210215
  3. ADRIAMYCIN [Concomitant]
     Active Substance: DOXORUBICIN HYDROCHLORIDE
     Indication: Acute lymphocytic leukaemia
     Dosage: 37 MG, D1, D8, D15
     Route: 042
     Dates: start: 20201228, end: 20210111
  4. TN UNSPECIFIED [Concomitant]
     Indication: Acute lymphocytic leukaemia
     Dosage: 15 MG, D1 TO D7, D15 TO D21
     Route: 048
     Dates: start: 20201228, end: 20210117
  5. TN UNSPECIFIED [Concomitant]
     Indication: Acute lymphocytic leukaemia
     Dosage: 15 MG, D4, D31
     Route: 037
     Dates: start: 20201231, end: 20210127
  6. TN UNSPECIFIED [Concomitant]
     Indication: Acute lymphocytic leukaemia
     Dosage: 15 MG, D4, D31
     Route: 065
     Dates: start: 20201231, end: 20210127
  7. TN UNSPECIFIED [Concomitant]
     Indication: Acute lymphocytic leukaemia
     Dosage: 30 MG, D4, D31
     Route: 037
     Dates: start: 20201231, end: 20210127
  8. TN UNSPECIFIED [Concomitant]
     Dosage: 110 MG, D31 TO D34, D38 TO D41
     Route: 042
     Dates: start: 20210127, end: 20210206
  9. TN UNSPECIFIED [Concomitant]
     Indication: Acute lymphocytic leukaemia
     Dosage: 1480 MG, D29
     Route: 042
     Dates: start: 20210125, end: 20210125
  10. TN UNSPECIFIED [Concomitant]
     Indication: Acute lymphocytic leukaemia
     Dosage: 100 MG, D29 TO D42
     Route: 048
     Dates: start: 20210125, end: 20210207

REACTIONS (1)
  - Sepsis [Recovered/Resolved]

NARRATIVE: CASE EVENT DATE: 20210216
